FAERS Safety Report 5601205-4 (Version None)
Quarter: 2008Q1

REPORT INFORMATION
  Report Type: 
  Country: None (occurrence: None)
  Receive Date: 20080108
  Receipt Date: 20070829
  Transmission Date: 20080703
  Serious: Yes (Other)
  Sender: FDA-Public Use
  Company Number: PERC20070053

PATIENT
  Age: 1 Year
  Sex: Male

DRUGS (2)
  1. PERCOCET [Suspect]
     Dosage: ORAL
     Route: 048
     Dates: start: 20060101
  2. OXYCONTIN [Suspect]
     Dosage: ORAL
     Route: 048
     Dates: start: 20060101

REACTIONS (2)
  - DRUG DEPENDENCE [None]
  - SOMNOLENCE [None]
